FAERS Safety Report 12943378 (Version 1)
Quarter: 2016Q4

REPORT INFORMATION
  Report Type: Spontaneous
  Country: US (occurrence: US)
  Receive Date: 20161115
  Receipt Date: 20161115
  Transmission Date: 20170207
  Serious: Yes (Hospitalization, Other)
  Sender: FDA-Public Use
  Company Number: US-GLAXOSMITHKLINE-US2016167261

PATIENT
  Age: 50 Year
  Sex: Female

DRUGS (17)
  1. FLONASE [Concomitant]
     Active Substance: FLUTICASONE PROPIONATE
  2. MEDROXYPROGESTERONE [Concomitant]
     Active Substance: MEDROXYPROGESTERONE
  3. ADDERALL [Concomitant]
     Active Substance: AMPHETAMINE ASPARTATE\AMPHETAMINE SULFATE\DEXTROAMPHETAMINE SACCHARATE\DEXTROAMPHETAMINE SULFATE
  4. LEVOTHYROXINE. [Concomitant]
     Active Substance: LEVOTHYROXINE
  5. PREVACID [Concomitant]
     Active Substance: LANSOPRAZOLE
  6. SUDAFED (PSEUDOEPHEDRINE HYDROCHLORIDE) [Concomitant]
  7. XANAX [Concomitant]
     Active Substance: ALPRAZOLAM
  8. IBUPROFEN. [Concomitant]
     Active Substance: IBUPROFEN
  9. MELOXICAM. [Concomitant]
     Active Substance: MELOXICAM
  10. VENLAFAXINE ER [Concomitant]
     Active Substance: VENLAFAXINE HYDROCHLORIDE
  11. ADVAIR DISKUS [Suspect]
     Active Substance: FLUTICASONE PROPIONATE\SALMETEROL XINAFOATE
     Indication: ASTHMA
     Dosage: 250/50 UG, U
     Route: 055
     Dates: start: 1995
  12. ESTRADIOL. [Concomitant]
     Active Substance: ESTRADIOL
  13. SIMVASTATIN. [Concomitant]
     Active Substance: SIMVASTATIN
  14. ADVAIR DISKUS [Suspect]
     Active Substance: FLUTICASONE PROPIONATE\SALMETEROL XINAFOATE
     Dosage: 500/50 UG, 1 PUFF(S), BID
     Route: 055
  15. ADVAIR DISKUS [Suspect]
     Active Substance: FLUTICASONE PROPIONATE\SALMETEROL XINAFOATE
     Dosage: 500/50 UG, 1 PUFF(S), TID
     Route: 055
  16. ADVAIR DISKUS [Suspect]
     Active Substance: FLUTICASONE PROPIONATE\SALMETEROL XINAFOATE
     Dosage: 500/50 UG, 1 PUFF(S), BID
     Route: 055
  17. MONTELUKAST [Concomitant]
     Active Substance: MONTELUKAST SODIUM

REACTIONS (8)
  - Limb reattachment surgery [Recovering/Resolving]
  - Asthma [Recovered/Resolved]
  - Accident at work [Recovering/Resolving]
  - Skin discolouration [Unknown]
  - Limb traumatic amputation [Recovering/Resolving]
  - Intentional overdose [Unknown]
  - Intentional product misuse [Unknown]
  - Pain [Unknown]

NARRATIVE: CASE EVENT DATE: 200909
